FAERS Safety Report 8652720 (Version 2)
Quarter: 2012Q4

REPORT INFORMATION
  Report Type: 
  Country: AU (occurrence: AU)
  Receive Date: 20120706
  Receipt Date: 20120905
  Transmission Date: 20130627
  Serious: Yes (Hospitalization, Other)
  Sender: FDA-Public Use
  Company Number: AU-B.I. PHARMACEUTICALS,INC./RIDGEFIELD-2012-AU-01185AU

PATIENT
  Sex: Male
  Weight: 85 kg

DRUGS (9)
  1. PRADAXA [Suspect]
     Indication: ATRIAL FIBRILLATION
     Dosage: 220 mg
     Dates: start: 20110305, end: 20110315
  2. LIPITOR [Concomitant]
     Indication: MYOCARDIAL INFARCTION
     Dates: start: 200609
  3. LIPITOR [Concomitant]
     Indication: STENT PLACEMENT
  4. MICARDIS [Concomitant]
     Indication: MYOCARDIAL INFARCTION
     Dates: start: 200609
  5. MICARDIS [Concomitant]
     Indication: STENT PLACEMENT
  6. CARTIA [Concomitant]
     Indication: MYOCARDIAL INFARCTION
     Dates: start: 200609
  7. CARTIA [Concomitant]
     Indication: STENT PLACEMENT
  8. NEXIUM [Concomitant]
     Indication: MYOCARDIAL INFARCTION
     Dates: start: 200609
  9. NEXIUM [Concomitant]
     Indication: STENT PLACEMENT

REACTIONS (3)
  - Gastrointestinal carcinoma [Recovered/Resolved]
  - Haematochezia [Recovered/Resolved]
  - Blood urine present [Unknown]
